FAERS Safety Report 4901677-4 (Version None)
Quarter: 2006Q1

REPORT INFORMATION
  Report Type: 
  Country: None (occurrence: None)
  Receive Date: 20060206
  Receipt Date: 20051020
  Transmission Date: 20060701
  Serious: No
  Sender: FDA-Public Use
  Company Number: US-BRISTOL-MYERS SQUIBB COMPANY-13151980

PATIENT

DRUGS (1)
  1. TAXOL [Suspect]
     Route: 042

REACTIONS (1)
  - RASH MACULO-PAPULAR [None]
